FAERS Safety Report 8122849-4 (Version None)
Quarter: 2012Q1

REPORT INFORMATION
  Report Type: 
  Country: None (occurrence: None)
  Receive Date: 20120208
  Receipt Date: 20120131
  Transmission Date: 20120608
  Serious: No
  Sender: FDA-Public Use
  Company Number: US-B.I. PHARMACEUTICALS,INC./RIDGEFIELD-2011-BP-24440BP

PATIENT
  Sex: Female

DRUGS (11)
  1. PRADAXA [Suspect]
     Indication: CEREBROVASCULAR ACCIDENT
  2. CARDURA [Concomitant]
     Indication: HYPERTENSION
  3. FISH OIL [Concomitant]
     Indication: SUPPLEMENTATION THERAPY
  4. SYNTHROID [Concomitant]
     Indication: HYPOTHYROIDISM
  5. SINEQUAN [Concomitant]
     Indication: DEPRESSION
  6. PRADAXA [Suspect]
     Indication: CEREBROVASCULAR ACCIDENT PROPHYLAXIS
     Dosage: 300 MG
     Route: 048
     Dates: start: 20110901
  7. VITAMIN B-12 [Concomitant]
     Indication: SUPPLEMENTATION THERAPY
  8. BIOTIN [Concomitant]
     Indication: SUPPLEMENTATION THERAPY
  9. MAGNESIUM [Concomitant]
     Indication: SUPPLEMENTATION THERAPY
  10. M.V.I. [Concomitant]
     Indication: SUPPLEMENTATION THERAPY
  11. RESTORIL [Concomitant]
     Indication: INSOMNIA

REACTIONS (5)
  - DRY MOUTH [None]
  - FEELING ABNORMAL [None]
  - ALOPECIA [None]
  - DECREASED APPETITE [None]
  - THIRST [None]
